FAERS Safety Report 7070760-2 (Version None)
Quarter: 2010Q4

REPORT INFORMATION
  Report Type: 
  Country: None (occurrence: None)
  Receive Date: 20101029
  Receipt Date: 20100628
  Transmission Date: 20110411
  Serious: Yes (Other)
  Sender: FDA-Public Use
  Company Number: US-BAYER-201013270NA

PATIENT
  Age: 24 Year
  Sex: Female
  Weight: 84 kg

DRUGS (5)
  1. YASMIN [Suspect]
     Indication: MENSTRUAL CYCLE MANAGEMENT
     Route: 048
     Dates: start: 20040101, end: 20080101
  2. YASMIN [Suspect]
     Route: 048
     Dates: start: 20080101
  3. ULTRAM [Concomitant]
  4. AXID [Concomitant]
  5. PROTONIX [Concomitant]

REACTIONS (12)
  - ABDOMINAL DISTENSION [None]
  - ABDOMINAL PAIN [None]
  - ABDOMINAL TENDERNESS [None]
  - BENIGN NEOPLASM OF ADRENAL GLAND [None]
  - CHOLECYSTITIS CHRONIC [None]
  - CHOLELITHIASIS [None]
  - DYSPEPSIA [None]
  - GASTROOESOPHAGEAL REFLUX DISEASE [None]
  - NAUSEA [None]
  - NEPHROLITHIASIS [None]
  - PERITONITIS [None]
  - TACHYCARDIA [None]
